FAERS Safety Report 9073027 (Version 2)
Quarter: 2013Q1

REPORT INFORMATION
  Report Type: Spontaneous
  Country: BR (occurrence: BR)
  Receive Date: 20130129
  Receipt Date: 20130314
  Transmission Date: 20140127
  Serious: Yes (Other)
  Sender: FDA-Public Use
  Company Number: BR-ABBOTT-13P-020-1040010-00

PATIENT
  Sex: Female
  Weight: 55 kg

DRUGS (5)
  1. SYNTHROID [Suspect]
     Indication: HYPOTHYROIDISM
     Route: 048
  2. SYNTHROID [Suspect]
     Indication: THYROID HORMONE REPLACEMENT THERAPY
     Route: 048
  3. SYNTHROID [Suspect]
     Route: 048
  4. SYNTHROID [Suspect]
     Dosage: BEFORE REMOVED THE THYROID
     Route: 048
  5. UNKNOWN HORMONE IMPORTED [Concomitant]
     Indication: MENOPAUSE

REACTIONS (7)
  - Pancreatectomy [Unknown]
  - Surgery [Recovered/Resolved]
  - Thyroid cancer [Recovered/Resolved]
  - Abdominal pain [Not Recovered/Not Resolved]
  - Micturition urgency [Not Recovered/Not Resolved]
  - Fatigue [Unknown]
  - Depressed mood [Unknown]
